FAERS Safety Report 10335346 (Version 1)
Quarter: 2014Q3

REPORT INFORMATION
  Report Type: Spontaneous
  Country: US (occurrence: US)
  Receive Date: 20140723
  Receipt Date: 20140723
  Transmission Date: 20150326
  Serious: No
  Sender: FDA-Public Use
  Company Number: US-UNITED THERAPEUTICS-UTC-042616

PATIENT
  Age: 70 Year
  Sex: Female
  Weight: 94.1 kg

DRUGS (3)
  1. REVATIO [Concomitant]
     Active Substance: SILDENAFIL CITRATE
  2. TYVASO [Suspect]
     Active Substance: TREPROSTINIL
     Dosage: 18 TO 54 MCG
     Dates: start: 20131028
  3. LETAIRIS [Suspect]
     Active Substance: AMBRISENTAN
     Route: 048
     Dates: start: 20131008, end: 2013

REACTIONS (5)
  - Peripheral swelling [Unknown]
  - Oedema [Unknown]
  - Gait disturbance [Unknown]
  - Discomfort [Unknown]
  - Cough [Unknown]

NARRATIVE: CASE EVENT DATE: 2013
